FAERS Safety Report 9402588 (Version 1)
Quarter: 2013Q3

REPORT INFORMATION
  Report Type: Report from Study
  Country: BR (occurrence: BR)
  Receive Date: 20130716
  Receipt Date: 20130716
  Transmission Date: 20140515
  Serious: Yes (Other)
  Sender: FDA-Public Use
  Company Number: PHHY2013BR074335

PATIENT
  Sex: Female

DRUGS (3)
  1. FORASEQ [Suspect]
     Indication: COUGH
     Dosage: UNK UKN, BID
  2. FORASEQ [Suspect]
     Indication: OFF LABEL USE
  3. LOSARTAN [Suspect]
     Indication: BLOOD PRESSURE ABNORMAL
     Dosage: UNK UKN, UNK

REACTIONS (8)
  - Cerebrovascular accident [Recovering/Resolving]
  - Hypertension [Recovering/Resolving]
  - Syncope [Recovering/Resolving]
  - Malaise [Recovering/Resolving]
  - Contusion [Recovering/Resolving]
  - Mood altered [Recovering/Resolving]
  - Stress [Recovering/Resolving]
  - Blood glucose increased [Recovering/Resolving]
